FAERS Safety Report 6213015-8 (Version None)
Quarter: 2009Q2

REPORT INFORMATION
  Report Type: 
  Country: None (occurrence: None)
  Receive Date: 20090528
  Receipt Date: 20090130
  Transmission Date: 20091009
  Serious: Yes (Other)
  Sender: FDA-Public Use
  Company Number: 178850USA

PATIENT
  Age: 65 Year
  Sex: Female

DRUGS (1)
  1. GABAPENTIN [Suspect]
     Indication: NERVE DEGENERATION
     Dosage: 2700 MG (300 MG, 9 IN 1 D), ORAL
     Route: 048
     Dates: start: 20080320, end: 20080401

REACTIONS (5)
  - DRUG INEFFECTIVE [None]
  - MYOCARDIAL INFARCTION [None]
  - PAIN [None]
  - PRODUCT QUALITY ISSUE [None]
  - SUICIDAL IDEATION [None]
